FAERS Safety Report 5533631-6 (Version None)
Quarter: 2007Q4

REPORT INFORMATION
  Report Type: 
  Country: None (occurrence: None)
  Receive Date: 20071120
  Receipt Date: 20070921
  Transmission Date: 20080405
  Serious: No
  Sender: FDA-Public Use
  Company Number: WAES 0709USA03794

PATIENT
  Age: 77 Year
  Sex: Male

DRUGS (1)
  1. JANUVIA [Suspect]
     Indication: BLOOD GLUCOSE
     Dosage: 100 MG/DAILY/PO
     Route: 048

REACTIONS (1)
  - DYSPEPSIA [None]
